FAERS Safety Report 5705627-2 (Version None)
Quarter: 2008Q2

REPORT INFORMATION
  Report Type: 
  Country: None (occurrence: None)
  Receive Date: 20080415
  Receipt Date: 20080407
  Transmission Date: 20081010
  Serious: Yes (Hospitalization)
  Sender: FDA-Public Use
  Company Number: FR-AVENTIS-200811268FR

PATIENT
  Age: 72 Year
  Sex: Male

DRUGS (3)
  1. RIFADIN [Suspect]
     Route: 048
     Dates: start: 20070523, end: 20070630
  2. RIMIFON [Suspect]
     Route: 048
     Dates: start: 20070523, end: 20070630
  3. MYAMBUTOL [Suspect]
     Route: 048
     Dates: start: 20070523, end: 20070630

REACTIONS (4)
  - CYTOLYTIC HEPATITIS [None]
  - DRUG RASH WITH EOSINOPHILIA AND SYSTEMIC SYMPTOMS [None]
  - EOSINOPHILIA [None]
  - RASH PAPULAR [None]
